FAERS Safety Report 9203613 (Version 3)
Quarter: 2013Q2

REPORT INFORMATION
  Report Type: Report from Study
  Country: BR (occurrence: BR)
  Receive Date: 20130402
  Receipt Date: 20130613
  Transmission Date: 20140414
  Serious: Yes (Hospitalization, Other)
  Sender: FDA-Public Use
  Company Number: PHHY2013BR030657

PATIENT
  Age: 20 Year
  Sex: Female

DRUGS (4)
  1. EXJADE [Suspect]
     Indication: SICKLE CELL ANAEMIA
     Dosage: 1 TABLET, DAILY
     Route: 048
     Dates: start: 201211, end: 201212
  2. PARACETAMOL [Concomitant]
  3. DIPYRONE [Concomitant]
     Dosage: UNK UKN, UNK
  4. OMEPRAZOLE [Concomitant]

REACTIONS (16)
  - Pain [Recovering/Resolving]
  - Dyspnoea [Recovering/Resolving]
  - Back pain [Recovering/Resolving]
  - Bone pain [Recovering/Resolving]
  - Arthralgia [Recovering/Resolving]
  - Chest pain [Recovering/Resolving]
  - Oropharyngeal pain [Not Recovered/Not Resolved]
  - Terminal state [Unknown]
  - Sickle cell anaemia with crisis [Recovering/Resolving]
  - Personality disorder [Recovering/Resolving]
  - Mood altered [Recovering/Resolving]
  - Nasopharyngitis [Recovering/Resolving]
  - Blood pressure decreased [Recovering/Resolving]
  - Headache [Recovering/Resolving]
  - Fatigue [Recovering/Resolving]
  - Serum ferritin increased [Recovering/Resolving]
